FAERS Safety Report 8699795 (Version 5)
Quarter: 2013Q2

REPORT INFORMATION
  Report Type: Report from Study
  Country: TW (occurrence: TW)
  Receive Date: 20120802
  Receipt Date: 20130530
  Transmission Date: 20140414
  Serious: Yes (Life-Threatening, Hospitalization)
  Sender: FDA-Public Use
  Company Number: TW-CELGENEUS-153-21880-12061323

PATIENT
  Age: 66 Year
  Sex: Male
  Weight: 69.5 kg

DRUGS (70)
  1. REVLIMID [Suspect]
     Indication: PLASMA CELL MYELOMA
     Route: 048
     Dates: start: 20110531
  2. REVLIMID [Suspect]
     Dosage: 10 MILLIGRAM
     Route: 048
     Dates: start: 20120530, end: 20120608
  3. REVLIMID [Suspect]
     Route: 048
     Dates: start: 20120710
  4. VALTREX [Concomitant]
     Indication: HERPES SIMPLEX
     Dosage: 1000 MILLIGRAM
     Route: 048
     Dates: start: 20110531
  5. MUACTION [Concomitant]
     Indication: BONE PAIN
     Dosage: 200 MILLIGRAM
     Route: 048
     Dates: start: 20110531
  6. BONEFOS [Concomitant]
     Indication: PLASMA CELL MYELOMA
     Dosage: 800 MILLIGRAM
     Route: 048
     Dates: start: 20110531
  7. ACERTIL [Concomitant]
     Indication: HYPERTENSION
     Dosage: 5 MILLIGRAM
     Route: 048
     Dates: start: 20110531
  8. AMARYL [Concomitant]
     Indication: DIABETES MELLITUS
     Dosage: 1 MILLIGRAM
     Route: 048
     Dates: start: 20111101
  9. DORISON [Concomitant]
     Indication: PLASMA CELL MYELOMA
     Dosage: 4 MILLIGRAM
     Route: 048
     Dates: start: 20110531
  10. STROCAIN [Concomitant]
     Indication: PROPHYLAXIS
     Dosage: 3 TABLET
     Route: 048
     Dates: start: 20111213
  11. ANZEPAM [Concomitant]
     Indication: INSOMNIA
     Route: 048
     Dates: start: 20111213
  12. BROWN MIXTURE [Concomitant]
     Indication: COUGH
     Route: 048
     Dates: start: 20120414, end: 20120514
  13. SMECTA [Concomitant]
     Indication: PRODUCT USED FOR UNKNOWN INDICATION
     Route: 048
     Dates: start: 20120609, end: 20120611
  14. SMECTA [Concomitant]
     Route: 048
     Dates: start: 20120611, end: 20120613
  15. SMECTA [Concomitant]
     Route: 048
     Dates: start: 20120622, end: 20120625
  16. SMECTA [Concomitant]
     Route: 048
     Dates: start: 20120622, end: 20120623
  17. LOPERAM [Concomitant]
     Indication: PRODUCT USED FOR UNKNOWN INDICATION
     Dosage: 6 MILLIGRAM
     Route: 048
     Dates: start: 20120609, end: 20120611
  18. POTASSIUM CHLORIDE [Concomitant]
     Indication: PRODUCT USED FOR UNKNOWN INDICATION
     Dosage: 10 CC
     Route: 041
     Dates: start: 20120609, end: 20120610
  19. ROLIKAN [Concomitant]
     Indication: PRODUCT USED FOR UNKNOWN INDICATION
     Route: 041
     Dates: start: 20120609, end: 20120610
  20. ROLIKAN [Concomitant]
     Dosage: 4 AMP
     Route: 041
     Dates: start: 20120610, end: 20120610
  21. ROLIKAN [Concomitant]
     Dosage: 2 AMP
     Route: 041
     Dates: start: 20120610, end: 20120610
  22. ALLOPURINOL [Concomitant]
     Indication: PRODUCT USED FOR UNKNOWN INDICATION
     Dosage: 1 TAB
     Route: 048
     Dates: start: 20120609, end: 20120610
  23. SOLU CORTEF [Concomitant]
     Indication: PRODUCT USED FOR UNKNOWN INDICATION
     Route: 041
     Dates: start: 20120610, end: 20120611
  24. SOLU CORTEF [Concomitant]
     Route: 041
     Dates: start: 20120620, end: 20120621
  25. DEPYRIN [Concomitant]
     Indication: PRODUCT USED FOR UNKNOWN INDICATION
     Dosage: 2000 MILLIGRAM
     Route: 048
     Dates: start: 20120610, end: 20120611
  26. DEPYRIN [Concomitant]
     Dosage: 2000 MILLIGRAM
     Route: 048
     Dates: start: 20120611, end: 20120625
  27. DEPYRIN [Concomitant]
     Dosage: 2000 MILLIGRAM
     Route: 048
     Dates: start: 20120625, end: 20120630
  28. DEPYRIN [Concomitant]
     Dosage: 2000 MILLIGRAM
     Route: 048
     Dates: start: 20120629, end: 20120704
  29. HEPARIN [Concomitant]
     Indication: PRODUCT USED FOR UNKNOWN INDICATION
     Route: 041
     Dates: start: 20120610, end: 20120611
  30. HEPARIN [Concomitant]
     Route: 041
     Dates: start: 20120610, end: 20120620
  31. VOLUVEN [Concomitant]
     Indication: PRODUCT USED FOR UNKNOWN INDICATION
     Route: 041
     Dates: start: 20120608, end: 20120611
  32. LACTATED [Concomitant]
     Indication: PRODUCT USED FOR UNKNOWN INDICATION
     Route: 065
     Dates: start: 20120608, end: 20120611
  33. LACTATED [Concomitant]
     Route: 065
     Dates: start: 20120619, end: 20120620
  34. DORMICUM [Concomitant]
     Indication: PRODUCT USED FOR UNKNOWN INDICATION
     Dosage: 1 AMP
     Route: 041
     Dates: start: 20120610, end: 20120611
  35. DORMICUM [Concomitant]
     Dosage: 24 AMP
     Route: 041
     Dates: start: 20120610, end: 20120611
  36. DORMICUM [Concomitant]
     Dosage: 24 AMP
     Route: 041
     Dates: start: 20120610, end: 20120611
  37. LIPITOR [Concomitant]
     Indication: PRODUCT USED FOR UNKNOWN INDICATION
     Dosage: 1 TAB
     Route: 048
     Dates: start: 20120610, end: 20120611
  38. LIPITOR [Concomitant]
     Dosage: 1 TAB
     Route: 048
     Dates: start: 20120610, end: 20120614
  39. LIPITOR [Concomitant]
     Dosage: 0.5 TAB
     Route: 048
     Dates: start: 20120614, end: 20120628
  40. POTASSIUM PHOSPHATE [Concomitant]
     Indication: PRODUCT USED FOR UNKNOWN INDICATION
     Dosage: 20 CC
     Route: 041
     Dates: start: 20120611, end: 20120612
  41. PRECEDEX [Concomitant]
     Indication: PRODUCT USED FOR UNKNOWN INDICATION
     Route: 041
     Dates: start: 20120611, end: 20120612
  42. PRECEDEX [Concomitant]
     Route: 041
     Dates: start: 20120611, end: 20120612
  43. VOLULYTE [Concomitant]
     Indication: PRODUCT USED FOR UNKNOWN INDICATION
     Route: 023
     Dates: start: 20120611, end: 20120612
  44. PLASMANATE [Concomitant]
     Indication: PRODUCT USED FOR UNKNOWN INDICATION
     Dosage: 4 BOT
     Route: 023
     Dates: start: 20120611, end: 20120612
  45. FAMO [Concomitant]
     Indication: PRODUCT USED FOR UNKNOWN INDICATION
     Dosage: 1 TAB
     Route: 065
     Dates: start: 20120611, end: 20120625
  46. FAMO [Concomitant]
     Dosage: 1 TAB
     Route: 065
     Dates: start: 20120611, end: 20120612
  47. FAMO [Concomitant]
     Dosage: 1 TAB
     Route: 065
     Dates: start: 20120629, end: 20120704
  48. FAMO [Concomitant]
     Dosage: 1 TAB
     Route: 065
     Dates: start: 20120625, end: 20120630
  49. NAPROXEN [Concomitant]
     Indication: PRODUCT USED FOR UNKNOWN INDICATION
     Dosage: 1 TAB
     Route: 065
     Dates: start: 20120612, end: 20120613
  50. CALGLON [Concomitant]
     Indication: PRODUCT USED FOR UNKNOWN INDICATION
     Dosage: 1 AMP
     Route: 041
     Dates: start: 20120614, end: 20120615
  51. MOPRIDE [Concomitant]
     Indication: PRODUCT USED FOR UNKNOWN INDICATION
     Dosage: 1 TAB
     Route: 048
     Dates: start: 20120617, end: 20120622
  52. TRANSAMIN [Concomitant]
     Indication: PRODUCT USED FOR UNKNOWN INDICATION
     Dosage: 1 AMP
     Route: 041
     Dates: start: 20120617, end: 20120622
  53. TRANSAMIN [Concomitant]
     Dosage: 2 CAP
     Route: 048
     Dates: start: 20120626, end: 20120627
  54. TRANSAMIN [Concomitant]
     Dosage: 1 CAP
     Route: 048
     Dates: start: 20120626, end: 20120629
  55. ATIVAN [Concomitant]
     Indication: PRODUCT USED FOR UNKNOWN INDICATION
  56. XANTHIUM [Concomitant]
     Indication: PRODUCT USED FOR UNKNOWN INDICATION
     Dosage: 1 CAP
     Route: 048
     Dates: start: 20120620, end: 20120621
  57. MEPTIN [Concomitant]
     Indication: PRODUCT USED FOR UNKNOWN INDICATION
     Dosage: 1 TAB
     Route: 048
     Dates: start: 20120620, end: 20120621
  58. MEPTIN [Concomitant]
     Dosage: 1 TAB
     Route: 048
     Dates: start: 20120629, end: 20120704
  59. COMBIVENT [Concomitant]
     Indication: PRODUCT USED FOR UNKNOWN INDICATION
     Dosage: 1 VIAL
     Dates: start: 20120620, end: 20120620
  60. ISMO [Concomitant]
     Indication: PRODUCT USED FOR UNKNOWN INDICATION
     Dosage: 40 MILLIGRAM
     Route: 048
     Dates: start: 20120620, end: 20120620
  61. NITROSTAT [Concomitant]
     Indication: PRODUCT USED FOR UNKNOWN INDICATION
     Route: 060
     Dates: start: 20120620, end: 20120620
  62. PULMICORT [Concomitant]
     Indication: PRODUCT USED FOR UNKNOWN INDICATION
     Dosage: 1 BG
     Route: 055
     Dates: start: 20120620, end: 20120620
  63. MILLISROL [Concomitant]
     Indication: PRODUCT USED FOR UNKNOWN INDICATION
     Dosage: 10 AMP
     Route: 065
     Dates: start: 20120620, end: 20120620
  64. MILLISROL [Concomitant]
     Dosage: 10 AMP
     Route: 065
     Dates: start: 20120620, end: 20120621
  65. ALLERMIN [Concomitant]
     Indication: PRODUCT USED FOR UNKNOWN INDICATION
     Dosage: 1 AMP
     Route: 041
     Dates: start: 20120609, end: 20120613
  66. ALLERMIN [Concomitant]
     Dosage: 1 AMP
     Route: 041
     Dates: start: 20120615, end: 20120620
  67. RED BLOOD CELLS [Concomitant]
     Indication: ANAEMIA
     Route: 065
     Dates: start: 20120609
  68. PLATELETS [Concomitant]
     Indication: PANCYTOPENIA
     Route: 041
  69. ULTRACET [Concomitant]
     Indication: PRODUCT USED FOR UNKNOWN INDICATION
     Route: 065
  70. ZOMETA [Concomitant]
     Indication: PRODUCT USED FOR UNKNOWN INDICATION
     Route: 065

REACTIONS (4)
  - Septic shock [Recovered/Resolved]
  - Necrotising fasciitis [Recovered/Resolved]
  - Diarrhoea [Recovered/Resolved]
  - Acute myocardial infarction [Recovered/Resolved]
